FAERS Safety Report 24596919 (Version 2)
Quarter: 2024Q4

REPORT INFORMATION
  Report Type: Spontaneous
  Country: US (occurrence: US)
  Receive Date: 20241110
  Receipt Date: 20241110
  Transmission Date: 20250115
  Serious: No
  Sender: SANOFI AVENTIS
  Company Number: US-SA-SAC20240119000177

PATIENT
  Age: 70 Year
  Sex: Female
  Weight: 102 kg

DRUGS (18)
  1. DUPIXENT [Suspect]
     Active Substance: DUPILUMAB
     Indication: Asthma
     Dosage: 300 MG, QOW
     Route: 058
  2. ALPRAZOLAM [Concomitant]
     Active Substance: ALPRAZOLAM
  3. CODEINE PHOSPHATE\GUAIFENESIN [Concomitant]
     Active Substance: CODEINE PHOSPHATE\GUAIFENESIN
  4. ALBUTEROL SULFATE [Concomitant]
     Active Substance: ALBUTEROL SULFATE
  5. LEVOFLOXACIN [Concomitant]
     Active Substance: LEVOFLOXACIN
  6. FLUCONAZOLE [Concomitant]
     Active Substance: FLUCONAZOLE
  7. OXYCODONE AND ACETAMINOPHEN [Concomitant]
     Active Substance: ACETAMINOPHEN\OXYCODONE HYDROCHLORIDE
  8. PREGABALIN [Concomitant]
     Active Substance: PREGABALIN
  9. OMEPRAZOLE [Concomitant]
     Active Substance: OMEPRAZOLE
  10. ALBUTEROL\IPRATROPIUM [Concomitant]
     Active Substance: ALBUTEROL\IPRATROPIUM
  11. TIZANIDINE [Concomitant]
     Active Substance: TIZANIDINE
  12. ABRYSVO [Concomitant]
     Active Substance: RECOMBINANT STABILIZED RSV A PREFUSION F ANTIGEN\RECOMBINANT STABILIZED RSV B PREFUSION F ANTIGEN
  13. ONDANSETRON [Concomitant]
     Active Substance: ONDANSETRON
  14. PREDNISONE [Concomitant]
     Active Substance: PREDNISONE
  15. SPIRIVA RESPIMAT [Concomitant]
     Active Substance: TIOTROPIUM BROMIDE
  16. WARFARIN [Concomitant]
     Active Substance: WARFARIN
  17. CLINDAMYCIN [Concomitant]
     Active Substance: CLINDAMYCIN
  18. PROMETHAZINE [Concomitant]
     Active Substance: PROMETHAZINE HYDROCHLORIDE

REACTIONS (1)
  - Dyspnoea [Unknown]
